FAERS Safety Report 5900886-5 (Version None)
Quarter: 2008Q3

REPORT INFORMATION
  Report Type: 
  Country: None (occurrence: None)
  Receive Date: 20080924
  Receipt Date: 20080916
  Transmission Date: 20090109
  Serious: Yes (Hospitalization)
  Sender: FDA-Public Use
  Company Number: 2008JP004246

PATIENT
  Sex: Female

DRUGS (2)
  1. PROGRAF [Suspect]
     Dosage: 3 MG, D, ORAL
     Route: 048
     Dates: start: 20080820
  2. PREDONINE (PREDNISOLONE SODIUM SUCCINATE) [Concomitant]

REACTIONS (4)
  - FALL [None]
  - HYPOAESTHESIA [None]
  - PARALYSIS [None]
  - TREMOR [None]
